FAERS Safety Report 6243554-5 (Version None)
Quarter: 2009Q2

REPORT INFORMATION
  Report Type: 
  Country: None (occurrence: None)
  Receive Date: 20090624
  Receipt Date: 20090617
  Transmission Date: 20091009
  Serious: Yes (Hospitalization)
  Sender: FDA-Public Use
  Company Number: CN-JNJFOC-20090605435

PATIENT
  Age: 16 Year
  Sex: Male

DRUGS (1)
  1. TYLENOL [Suspect]
     Indication: NASOPHARYNGITIS

REACTIONS (3)
  - DRUG HYPERSENSITIVITY [None]
  - RASH [None]
  - TACHYPNOEA [None]
